FAERS Safety Report 9376298 (Version 2)
Quarter: 2013Q3

REPORT INFORMATION
  Report Type: Report from Study
  Country: US (occurrence: US)
  Receive Date: 20130701
  Receipt Date: 20130702
  Transmission Date: 20140515
  Serious: Yes (Death)
  Sender: FDA-Public Use
  Company Number: US-ROCHE-1242980

PATIENT
  Sex: Female

DRUGS (4)
  1. RITUXAN [Suspect]
     Indication: LUPUS NEPHRITIS
     Route: 042
     Dates: end: 20120516
  2. RITUXAN [Suspect]
     Indication: OFF LABEL USE
  3. CELLCEPT [Concomitant]
     Route: 048
  4. SOLU-MEDROL [Concomitant]

REACTIONS (1)
  - Sepsis [Fatal]
